FAERS Safety Report 10900741 (Version 2)
Quarter: 2015Q1

REPORT INFORMATION
  Report Type: Spontaneous
  Country: JP (occurrence: None)
  Receive Date: 20150303
  Receipt Date: 20150330
  Transmission Date: 20150721
  Serious: Yes (Other)
  Sender: FDA-Public Use
  Company Number: JP-2015VAL000184

PATIENT
  Age: 80 Year
  Sex: Male

DRUGS (1)
  1. PARLODEL [Suspect]
     Active Substance: BROMOCRIPTINE MESYLATE
     Indication: PITUITARY TUMOUR
     Route: 048

REACTIONS (2)
  - Neoplasm of appendix [None]
  - Cholelithiasis [None]
